FAERS Safety Report 6469913-3 (Version None)
Quarter: 2009Q4

REPORT INFORMATION
  Report Type: 
  Country: None (occurrence: None)
  Receive Date: 20091203
  Receipt Date: 20081204
  Transmission Date: 20100525
  Serious: Yes (Hospitalization)
  Sender: FDA-Public Use
  Company Number: US-ELI_LILLY_AND_COMPANY-US200711000642

PATIENT
  Sex: Female
  Weight: 76.19 kg

DRUGS (10)
  1. BYETTA [Suspect]
     Indication: TYPE 2 DIABETES MELLITUS
     Dosage: 5 UG, 2/D
     Route: 058
     Dates: start: 20061006, end: 20061201
  2. BYETTA [Suspect]
     Dosage: 10 UG, 2/D
     Route: 058
     Dates: start: 20061201, end: 20071018
  3. LIPITOR [Concomitant]
     Indication: BLOOD CHOLESTEROL INCREASED
     Dosage: 20 MG, DAILY (1/D)
     Route: 048
  4. GLUCOPHAGE [Concomitant]
     Dosage: 500 MG, 2/D
     Route: 048
  5. HYZAAR [Concomitant]
     Dosage: UNK, DAILY (1/D)
     Route: 048
  6. ZOLOFT [Concomitant]
     Dosage: 50 MG, DAILY (1/D)
     Route: 048
  7. SYNTHROID [Concomitant]
     Dosage: 50 UG, DAILY (1/D)
     Route: 048
  8. METOPROLOL [Concomitant]
     Dosage: 100 MG, 2/D
     Route: 048
  9. IMDUR [Concomitant]
     Dosage: 30 MG, DAILY (1/D)
     Route: 048
  10. TRAZODONE HCL [Concomitant]
     Dosage: 100 MG, EACH EVENING
     Route: 048

REACTIONS (8)
  - ABDOMINAL PAIN [None]
  - BLOOD BILIRUBIN INCREASED [None]
  - BLOOD MAGNESIUM DECREASED [None]
  - BLOOD POTASSIUM DECREASED [None]
  - BLOOD PRESSURE INCREASED [None]
  - HEPATIC ENZYME INCREASED [None]
  - PANCREATITIS [None]
  - WEIGHT DECREASED [None]
